FAERS Safety Report 16710908 (Version 1)
Quarter: 2019Q3

REPORT INFORMATION
  Report Type: Spontaneous
  Country: FR (occurrence: FR)
  Receive Date: 20190816
  Receipt Date: 20190816
  Transmission Date: 20191004
  Serious: Yes (Hospitalization)
  Sender: FDA-Public Use
  Company Number: FR-PFIZER INC-2019348701

PATIENT
  Age: 87 Year
  Sex: Male

DRUGS (11)
  1. BISOCE [Concomitant]
     Active Substance: BISOPROLOL
     Dosage: UNK
  2. RIFAMPICINE [Concomitant]
     Active Substance: RIFAMPIN
     Dosage: UNK
  3. ZYVOXID [Suspect]
     Active Substance: LINEZOLID
     Indication: ENDOCARDITIS BACTERIAL
     Dosage: 1200 MG, 1X/DAY
     Route: 048
     Dates: start: 20190625, end: 20190708
  4. SERESTA [Concomitant]
     Active Substance: OXAZEPAM
     Dosage: UNK
  5. CANDESARTAN CILEXETIL. [Concomitant]
     Active Substance: CANDESARTAN CILEXETIL
     Dosage: UNK
  6. ACIDE FOLIQUE [Concomitant]
     Active Substance: FOLIC ACID
     Dosage: UNK
  7. LOVENOX [Concomitant]
     Active Substance: ENOXAPARIN SODIUM
     Dosage: UNK
  8. JANUVIA [Concomitant]
     Active Substance: SITAGLIPTIN PHOSPHATE
     Dosage: UNK
  9. CRESTOR [Concomitant]
     Active Substance: ROSUVASTATIN CALCIUM
     Dosage: UNK
  10. METHOTREXATE. [Concomitant]
     Active Substance: METHOTREXATE
     Dosage: UNK
  11. FUNGIZONE [Concomitant]
     Active Substance: AMPHOTERICIN B
     Dosage: UNK

REACTIONS (2)
  - Thrombocytopenia [Recovering/Resolving]
  - Aplastic anaemia [Recovering/Resolving]

NARRATIVE: CASE EVENT DATE: 201907
